FAERS Safety Report 10813395 (Version 1)
Quarter: 2015Q1

REPORT INFORMATION
  Report Type: Report from Study
  Country: US (occurrence: US)
  Receive Date: 20150218
  Receipt Date: 20150218
  Transmission Date: 20150721
  Serious: No
  Sender: FDA-Public Use
  Company Number: US-ABBVIE-14K-163-1273780-00

PATIENT
  Age: 56 Year
  Sex: Female

DRUGS (12)
  1. UNKNOWN INJECTIONS [Suspect]
     Active Substance: UNSPECIFIED INGREDIENT
     Route: 008
     Dates: start: 20140723, end: 20140723
  2. TYLENOL [Concomitant]
     Active Substance: ACETAMINOPHEN
     Indication: PAIN
  3. HUMIRA [Suspect]
     Active Substance: ADALIMUMAB
     Dates: start: 20140811, end: 20140826
  4. MOBIC [Concomitant]
     Active Substance: MELOXICAM
     Indication: PAIN
  5. UNKNOWN INJECTIONS [Suspect]
     Active Substance: UNSPECIFIED INGREDIENT
     Route: 008
     Dates: start: 20140708, end: 20140708
  6. HUMIRA [Suspect]
     Active Substance: ADALIMUMAB
     Indication: RHEUMATOID ARTHRITIS
     Dates: start: 20140509
  7. UNKNOWN MEDICATION [Suspect]
     Active Substance: UNSPECIFIED INGREDIENT
     Indication: PRODUCT USED FOR UNKNOWN INDICATION
     Dates: start: 20140509
  8. PREDNISONE. [Concomitant]
     Active Substance: PREDNISONE
     Indication: NECK PAIN
     Dates: start: 201404
  9. UNKNOWN MEDICATION [Suspect]
     Active Substance: UNSPECIFIED INGREDIENT
     Indication: PRODUCT USED FOR UNKNOWN INDICATION
     Dates: start: 20140509
  10. UNKNOWN INJECTIONS [Suspect]
     Active Substance: UNSPECIFIED INGREDIENT
     Indication: INTERVERTEBRAL DISC PROTRUSION
     Route: 008
     Dates: start: 201406, end: 201406
  11. LEFLUNOMIDE. [Concomitant]
     Active Substance: LEFLUNOMIDE
     Indication: RHEUMATOID ARTHRITIS
  12. MULTIVITAMINS [Concomitant]
     Active Substance: VITAMINS
     Indication: SUPPLEMENTATION THERAPY

REACTIONS (4)
  - Dizziness [Unknown]
  - Intervertebral disc protrusion [Unknown]
  - Rash papular [Not Recovered/Not Resolved]
  - Rash pruritic [Not Recovered/Not Resolved]

NARRATIVE: CASE EVENT DATE: 2014
